FAERS Safety Report 4626102-2 (Version None)
Quarter: 2005Q1

REPORT INFORMATION
  Report Type: 
  Country: None (occurrence: None)
  Receive Date: 20050330
  Receipt Date: 20050310
  Transmission Date: 20050727
  Serious: Yes (Life-Threatening, Hospitalization)
  Sender: FDA-Public Use
  Company Number: EWC050343049

PATIENT
  Age: 84 Year
  Sex: Female

DRUGS (3)
  1. PROZAC [Suspect]
     Indication: DEPRESSION
     Dosage: 10 MG/1 DAY
     Dates: start: 20041101, end: 20050223
  2. VALSARTAN [Concomitant]
  3. ACETYL SALICYLIC ACID USP BAT [Concomitant]

REACTIONS (8)
  - COGNITIVE DISORDER [None]
  - CONDITION AGGRAVATED [None]
  - DISORIENTATION [None]
  - HYPERREFLEXIA [None]
  - HYPOCALCAEMIA [None]
  - HYPONATRAEMIA [None]
  - PETIT MAL EPILEPSY [None]
  - SOPOR [None]
